FAERS Safety Report 20844827 (Version 1)
Quarter: 2022Q2

REPORT INFORMATION
  Report Type: Spontaneous
  Country: CN (occurrence: CN)
  Receive Date: 20220518
  Receipt Date: 20220518
  Transmission Date: 20220721
  Serious: Yes (Other)
  Sender: FDA-Public Use
  Company Number: CN-ELI_LILLY_AND_COMPANY-CN202205003735

PATIENT
  Age: 54 Year
  Sex: Female
  Weight: 66 kg

DRUGS (2)
  1. PEMETREXED [Suspect]
     Active Substance: PEMETREXED
     Indication: Lung neoplasm malignant
     Dosage: 0.8 G, SINGLE
     Route: 041
     Dates: start: 20220415, end: 20220415
  2. NEDAPLATIN [Concomitant]
     Active Substance: NEDAPLATIN
     Indication: Lung neoplasm malignant
     Dosage: 60 MG, SINGLE
     Route: 041
     Dates: start: 20220415, end: 20220416

REACTIONS (1)
  - Hepatic function abnormal [Recovering/Resolving]

NARRATIVE: CASE EVENT DATE: 20220416
